FAERS Safety Report 8396349-0 (Version None)
Quarter: 2012Q1

REPORT INFORMATION
  Report Type: 
  Country: None (occurrence: None)
  Receive Date: 20120323
  Receipt Date: 20110823
  Transmission Date: 20120608
  Serious: Yes (Life-Threatening, Hospitalization)
  Sender: FDA-Public Use
  Company Number: 163-21880-11073022

PATIENT
  Age: 66 Year
  Sex: Male
  Weight: 49.8957 kg

DRUGS (18)
  1. ASPIRIN (ACETYLSALICYLIC ACID) (CHEWABLE TABLET) [Concomitant]
  2. MINOCYCLINE HCL [Concomitant]
  3. DEXAMETHASONE [Concomitant]
  4. REVLIMID [Suspect]
     Indication: MULTIPLE MYELOMA
     Dosage: 25 MG, 1 IN 1 D, PO
     Route: 048
     Dates: start: 20110629, end: 20110718
  5. PREDNISONE TAB [Concomitant]
  6. SULFAMETHOXAZOLE/TRIMETHOPRIM (BACTRIM) (TABLETS) [Concomitant]
  7. VALCYTE [Concomitant]
  8. LEVAQUIN [Concomitant]
  9. NYSTATIN [Concomitant]
  10. TOPROL-XL [Concomitant]
  11. ZITHROMAX [Concomitant]
  12. CELLCEPT [Concomitant]
  13. NEXIUM [Concomitant]
  14. MULTIVITAMIN [Concomitant]
  15. ETHAMBUTOL HCL (ETHAMBUTOL DIHYDROCHLORIDE) [Concomitant]
  16. PROGRAF [Concomitant]
  17. REVLIMID [Suspect]
  18. CALCIUM + D + MINERALS (CALCIUM W/MINERALS/VITAMIN D NOS) [Concomitant]

REACTIONS (1)
  - BRONCHITIS [None]
